FAERS Safety Report 4998043-2 (Version None)
Quarter: 2006Q2

REPORT INFORMATION
  Report Type: 
  Country: None (occurrence: None)
  Receive Date: 20060508
  Receipt Date: 20060505
  Transmission Date: 20061013
  Serious: Yes (Hospitalization)
  Sender: FDA-Public Use
  Company Number: 219941

PATIENT
  Sex: Male

DRUGS (1)
  1. RAPTIVA [Suspect]
     Indication: PSORIASIS

REACTIONS (5)
  - FATIGUE [None]
  - HYPERHIDROSIS [None]
  - LETHARGY [None]
  - SYNCOPE VASOVAGAL [None]
  - WHITE BLOOD CELL COUNT INCREASED [None]
